FAERS Safety Report 18305227 (Version 8)
Quarter: 2021Q4

REPORT INFORMATION
  Report Type: Report from Study
  Country: CO (occurrence: CO)
  Receive Date: 20200924
  Receipt Date: 20211004
  Transmission Date: 20220303
  Serious: Yes (Other)
  Sender: FDA-Public Use
  Company Number: CO-AMGEN-COLSL2019115966

PATIENT
  Age: 61 Year
  Sex: Male

DRUGS (5)
  1. VECTIBIX [Suspect]
     Active Substance: PANITUMUMAB
     Indication: Colorectal cancer metastatic
     Dosage: 552 MILLIGRAM, Q2WK
     Route: 042
     Dates: start: 20190426, end: 2019
  2. VECTIBIX [Suspect]
     Active Substance: PANITUMUMAB
     Dosage: 570 MILLIGRAM, Q2WK
     Route: 042
     Dates: start: 20191016
  3. VECTIBIX [Suspect]
     Active Substance: PANITUMUMAB
     Dosage: 584 MILLIGRAM, Q2WK
     Route: 042
     Dates: start: 20200311
  4. VECTIBIX [Suspect]
     Active Substance: PANITUMUMAB
     Dosage: 585 MILLIGRAM, Q2WK (BIWEEKLY)
     Route: 042
  5. POLYVINYL ALCOHOL\POVIDONE [Concomitant]
     Active Substance: POLYVINYL ALCOHOL\POVIDONE
     Dosage: 1 DROP, BID (IN EACH EYE)
     Dates: start: 20200314

REACTIONS (18)
  - Conjunctival haemorrhage [Not Recovered/Not Resolved]
  - Colorectal cancer metastatic [Not Recovered/Not Resolved]
  - Vena cava thrombosis [Recovered/Resolved]
  - Skin reaction [Not Recovered/Not Resolved]
  - Blepharitis [Not Recovered/Not Resolved]
  - Conjunctivitis [Recovering/Resolving]
  - Rash [Not Recovered/Not Resolved]
  - Dry mouth [Not Recovered/Not Resolved]
  - Dry skin [Not Recovered/Not Resolved]
  - Pruritus [Unknown]
  - Erythema [Not Recovered/Not Resolved]
  - Bone pain [Not Recovered/Not Resolved]
  - Inflammation [Recovered/Resolved]
  - Malaise [Recovered/Resolved]
  - Swelling face [Recovered/Resolved]
  - Pain [Recovered/Resolved]
  - Dyspnoea [Recovered/Resolved]
  - Asthenia [Recovered/Resolved]

NARRATIVE: CASE EVENT DATE: 20190716
